FAERS Safety Report 15667082 (Version 2)
Quarter: 2019Q1

REPORT INFORMATION
  Report Type: Spontaneous
  Country: US (occurrence: US)
  Receive Date: 20181128
  Receipt Date: 20190101
  Transmission Date: 20190417
  Serious: No
  Sender: FDA-Public Use
  Company Number: US-PFIZER INC-2018480027

PATIENT
  Sex: Female

DRUGS (2)
  1. PROPOFOL. [Suspect]
     Active Substance: PROPOFOL
     Dosage: UNK (10 MG PER ML AND 20 ML IS THE SIZE)
  2. PROPOFOL. [Suspect]
     Active Substance: PROPOFOL
     Dosage: UNK

REACTIONS (2)
  - Agitation [Recovered/Resolved]
  - Cough [Recovered/Resolved]

NARRATIVE: CASE EVENT DATE: 20181113
